FAERS Safety Report 6426460-2 (Version None)
Quarter: 2009Q4

REPORT INFORMATION
  Report Type: 
  Country: None (occurrence: None)
  Receive Date: 20091103
  Receipt Date: 20091103
  Transmission Date: 20100525
  Serious: Yes (Life-Threatening)
  Sender: FDA-Public Use
  Company Number: None

PATIENT
  Age: 92 Year
  Sex: Male
  Weight: 69.4003 kg

DRUGS (1)
  1. SUNITINIB 50 MG PFIZER [Suspect]
     Indication: BLADDER CANCER
     Dosage: 50 MG DAILY PO
     Route: 048
     Dates: start: 20091017, end: 20091029

REACTIONS (1)
  - CEREBROVASCULAR ACCIDENT [None]
